FAERS Safety Report 7636793-X (Version None)
Quarter: 2011Q3

REPORT INFORMATION
  Report Type: 
  Country: None (occurrence: None)
  Receive Date: 20110726
  Receipt Date: 20100707
  Transmission Date: 20111222
  Serious: No
  Sender: FDA-Public Use
  Company Number: US-MUTUAL PHARMACEUTICAL COMPANY, INC.-2010P1000188

PATIENT
  Sex: Female
  Weight: 60.78 kg

DRUGS (3)
  1. LISINOPRIL [Concomitant]
     Route: 048
     Dates: start: 20070101
  2. DOXYCYCLINE HYCLATE [Suspect]
     Route: 048
     Dates: start: 20100704, end: 20100706
  3. LEVOXYL [Suspect]
     Route: 048
     Dates: start: 20100703

REACTIONS (4)
  - RASH [None]
  - DISCOMFORT [None]
  - RASH ERYTHEMATOUS [None]
  - PRURITUS [None]
